FAERS Safety Report 17878039 (Version 1)
Quarter: 2020Q2

REPORT INFORMATION
  Report Type: Spontaneous
  Country: AU (occurrence: AU)
  Receive Date: 20200610
  Receipt Date: 20200610
  Transmission Date: 20200714
  Serious: Yes (Hospitalization, Other)
  Sender: FDA-Public Use
  Company Number: AU-LUPIN HEALTHCARE (UK) LIMITED-2020-02738

PATIENT
  Age: 72 Year
  Sex: Male

DRUGS (1)
  1. CEPHALEXIN. [Suspect]
     Active Substance: CEPHALEXIN
     Indication: ORCHITIS
     Dosage: UNK
     Route: 048

REACTIONS (3)
  - Orchitis [Recovering/Resolving]
  - Condition aggravated [Recovering/Resolving]
  - Testicular infarction [Recovering/Resolving]
